FAERS Safety Report 9664358 (Version 2)
Quarter: 2014Q2

REPORT INFORMATION
  Report Type: Spontaneous
  Country: US (occurrence: US)
  Receive Date: 20131101
  Receipt Date: 20140429
  Transmission Date: 20141212
  Serious: Yes (Hospitalization)
  Sender: FDA-Public Use
  Company Number: US-B.I. PHARMACEUTICALS,INC./RIDGEFIELD-2013-BI-34352BP

PATIENT
  Age: 64 Year
  Sex: Female
  Weight: 147.42 kg

DRUGS (6)
  1. PRADAXA [Suspect]
     Indication: ATRIAL FIBRILLATION
     Dosage: 300 MG
     Route: 048
     Dates: start: 20120416, end: 20130109
  2. LEVOTHYROXINE [Concomitant]
     Route: 065
     Dates: start: 2008
  3. PROTONIX [Concomitant]
     Dosage: 40 MG
     Route: 065
  4. PROAIR [Concomitant]
     Route: 065
  5. HYDROCODONE/ACETAMINOPHEN [Concomitant]
     Route: 065
  6. POTASSIUM [Concomitant]
     Route: 065

REACTIONS (3)
  - Gastrointestinal haemorrhage [Unknown]
  - Microcytic anaemia [Unknown]
  - International normalised ratio increased [Unknown]
